FAERS Safety Report 12531900 (Version 2)
Quarter: 2016Q3

REPORT INFORMATION
  Report Type: Spontaneous
  Country: US (occurrence: US)
  Receive Date: 20160706
  Receipt Date: 20160816
  Transmission Date: 20161109
  Serious: Yes (Hospitalization, Other)
  Sender: FDA-Public Use
  Company Number: US-BRISTOL-MYERS SQUIBB COMPANY-BMS-2016-054678

PATIENT
  Age: 89 Year
  Sex: Male

DRUGS (1)
  1. OPDIVO [Suspect]
     Active Substance: NIVOLUMAB
     Indication: HODGKIN^S DISEASE
     Dosage: 1 DF, UNK
     Route: 042
     Dates: start: 2016, end: 2016

REACTIONS (5)
  - Dyspnoea [Recovered/Resolved]
  - Product use issue [Unknown]
  - Acute respiratory failure [Recovered/Resolved]
  - Stridor [Recovered/Resolved]
  - Infusion related reaction [Recovered/Resolved]
